FAERS Safety Report 8746279 (Version 2)
Quarter: 2013Q4

REPORT INFORMATION
  Report Type: Report from Study
  Country: JP (occurrence: JP)
  Receive Date: 20120827
  Receipt Date: 20131101
  Transmission Date: 20140711
  Serious: Yes (Other)
  Sender: FDA-Public Use
  Company Number: JP-009507513-1208JPN004776

PATIENT
  Age: 48 Year
  Sex: Female
  Weight: 47 kg

DRUGS (6)
  1. PEGINTRON [Suspect]
     Indication: HEPATITIS C
     Dosage: 80 MICROGRAM PER KILOGRAM, QW
     Route: 058
     Dates: start: 20120612, end: 20120617
  2. REBETOL [Suspect]
     Indication: HEPATITIS C
     Dosage: 400 MG, QD
     Route: 048
     Dates: start: 20120612, end: 20120617
  3. TELAVIC [Suspect]
     Indication: HEPATITIS C
     Dosage: 1500 MG, QD
     Route: 048
     Dates: start: 20120612, end: 20120617
  4. TALION (BEPOTASTINE BESYLATE) [Concomitant]
     Indication: RHINITIS ALLERGIC
     Dosage: 20 MG, QD
     Route: 048
  5. LOXONIN [Concomitant]
     Indication: PROPHYLAXIS
     Dosage: 60 MG, QD, FORMULATION-POR
     Route: 048
     Dates: start: 20120612, end: 20120617
  6. MUCOSTA [Concomitant]
     Indication: PROPHYLAXIS
     Dosage: 100 MG, QD, FORMULATION- POR
     Route: 048
     Dates: start: 20120612, end: 20120617

REACTIONS (1)
  - Nausea [Recovered/Resolved]
